FAERS Safety Report 8881001 (Version 3)
Quarter: 2013Q1

REPORT INFORMATION
  Report Type: Spontaneous
  Country: US (occurrence: US)
  Receive Date: 20121101
  Receipt Date: 20130201
  Transmission Date: 20140127
  Serious: Yes (Other)
  Sender: FDA-Public Use
  Company Number: US-PFIZER INC-2012269048

PATIENT
  Age: 48 Year
  Sex: Female

DRUGS (4)
  1. LYRICA [Suspect]
     Indication: ABDOMINAL PAIN
     Dosage: 100 MG, 3X/DAY
     Route: 048
     Dates: start: 20120709, end: 20120926
  2. LYRICA [Suspect]
     Dosage: 50 MG, 3X/DAY
     Route: 048
     Dates: start: 20120927, end: 20121003
  3. LYRICA [Suspect]
     Dosage: 50 MG, 2X/DAY
     Route: 048
     Dates: start: 20121004, end: 20121010
  4. LYRICA [Suspect]
     Dosage: 50 MG, 1X/DAY
     Route: 048
     Dates: start: 20121011, end: 20121017

REACTIONS (7)
  - Mental impairment [Not Recovered/Not Resolved]
  - Depression [Not Recovered/Not Resolved]
  - Drug ineffective [Unknown]
  - Thinking abnormal [Unknown]
  - Decreased appetite [Not Recovered/Not Resolved]
  - Anhedonia [Not Recovered/Not Resolved]
  - Abdominal pain [Unknown]
